FAERS Safety Report 8199957-5 (Version None)
Quarter: 2012Q1

REPORT INFORMATION
  Report Type: 
  Country: None (occurrence: None)
  Receive Date: 20120306
  Receipt Date: 20120229
  Transmission Date: 20120608
  Serious: No
  Sender: FDA-Public Use
  Company Number: ADR-2012-00479

PATIENT
  Sex: Male

DRUGS (2)
  1. LIORESAL [Suspect]
     Indication: MUSCLE SPASTICITY
     Dosage: 100 MCG/DAY
  2. LIORESAL [Suspect]
     Indication: CEREBRAL PALSY
     Dosage: 100 MCG/DAY

REACTIONS (3)
  - PAIN [None]
  - MUSCLE SPASTICITY [None]
  - JOINT DISLOCATION [None]
